FAERS Safety Report 15244981 (Version 1)
Quarter: 2018Q3

REPORT INFORMATION
  Report Type: Spontaneous
  Country: US (occurrence: US)
  Receive Date: 20180713
  Receipt Date: 20180713
  Transmission Date: 20181010
  Serious: Yes (Life-Threatening)
  Sender: FDA-Public Use
  Company Number: None

PATIENT
  Age: 57 Year
  Sex: Female
  Weight: 92.25 kg

DRUGS (2)
  1. HYDROCHLOROTHIAZIDE. [Concomitant]
     Active Substance: HYDROCHLOROTHIAZIDE
  2. DEFINITY [Suspect]
     Active Substance: PERFLUTREN
     Indication: ECHOCARDIOGRAM
     Route: 042
     Dates: start: 20180710, end: 20180710

REACTIONS (5)
  - Hypotension [None]
  - Anaphylactic reaction [None]
  - Loss of consciousness [None]
  - Hot flush [None]
  - Dyspnoea [None]

NARRATIVE: CASE EVENT DATE: 20180710
